FAERS Safety Report 5355431-2 (Version None)
Quarter: 2007Q2

REPORT INFORMATION
  Report Type: 
  Country: None (occurrence: None)
  Receive Date: 20070530
  Receipt Date: 20070117
  Transmission Date: 20071010
  Serious: Yes (Hospitalization, Other)
  Sender: FDA-Public Use
  Company Number: US200609003416

PATIENT
  Age: 33 Year
  Sex: Female
  Weight: 54.4 kg

DRUGS (4)
  1. ZYPREXA [Suspect]
     Dosage: SEE IMAGE
     Dates: start: 19950101, end: 19960101
  2. ZYPREXA [Suspect]
     Dosage: SEE IMAGE
     Dates: start: 19990101, end: 20050101
  3. SEROQUEL [Concomitant]
  4. ZOLOFT [Concomitant]

REACTIONS (2)
  - DRUG EXPOSURE DURING PREGNANCY [None]
  - PANCREATITIS [None]
